FAERS Safety Report 16029914 (Version 1)
Quarter: 2019Q2

REPORT INFORMATION
  Report Type: Spontaneous
  Country: US (occurrence: US)
  Receive Date: 20190304
  Receipt Date: 20190304
  Transmission Date: 20190711
  Serious: No
  Sender: FDA-Public Use
  Company Number: None

PATIENT
  Age: 44 Year
  Sex: Male
  Weight: 65.77 kg

DRUGS (18)
  1. CRESTOR [Concomitant]
     Active Substance: ROSUVASTATIN CALCIUM
  2. CALCIUM [Concomitant]
     Active Substance: CALCIUM
  3. PROBIOTIC [Concomitant]
     Active Substance: PROBIOTICS NOS
  4. L-ARGENINE [Concomitant]
  5. ZINC. [Concomitant]
     Active Substance: ZINC
  6. VITAMIN C [Concomitant]
     Active Substance: ASCORBIC ACID
  7. FLAXSEED [Concomitant]
     Active Substance: FLAX SEED
  8. MAGNESIUM [Concomitant]
     Active Substance: MAGNESIUM
  9. AZOR [Concomitant]
     Active Substance: AMLODIPINE BESYLATE\OLMESARTAN MEDOXOMIL
  10. VITAMIN D NOS [Concomitant]
     Active Substance: VITAMIN D NOS
  11. BIOTIN [Concomitant]
     Active Substance: BIOTIN
  12. IRON [Concomitant]
     Active Substance: IRON
  13. NOVOLOG [Suspect]
     Active Substance: INSULIN ASPART
     Indication: TYPE 1 DIABETES MELLITUS
     Dosage: ?          QUANTITY:5 PREFILLED SYRINGES;?
     Dates: start: 20180901
  14. ECOTRIN [Concomitant]
     Active Substance: ASPIRIN
  15. LANTUS [Concomitant]
     Active Substance: INSULIN GLARGINE
  16. FOLIC ACID. [Concomitant]
     Active Substance: FOLIC ACID
  17. KRILL OIL [Concomitant]
     Active Substance: DIETARY SUPPLEMENT
  18. LIALDA [Concomitant]
     Active Substance: MESALAMINE

REACTIONS (5)
  - Blood glucose increased [None]
  - Device defective [None]
  - Product complaint [None]
  - Incorrect dose administered by device [None]
  - Insurance issue [None]

NARRATIVE: CASE EVENT DATE: 20190303
